FAERS Safety Report 7808362-X (Version None)
Quarter: 2011Q4

REPORT INFORMATION
  Report Type: 
  Country: None (occurrence: None)
  Receive Date: 20111007
  Receipt Date: 20110928
  Transmission Date: 20120403
  Serious: Yes (Other)
  Sender: FDA-Public Use
  Company Number: 1060204

PATIENT
  Age: 66 Year
  Sex: Female
  Weight: 62.2 kg

DRUGS (2)
  1. PACLITAXEL [Suspect]
     Indication: BREAST CANCER
     Dosage: 129 MG MILLIGRAM(S), 1 WEEK INTRAVENOUS
     Route: 042
     Dates: start: 20110707
  2. AVASTIN [Suspect]
     Indication: BREAST CANCER
     Dosage: 625 MG MILLIGRAM (S), 1 WEEK, INTRAVENOUS
     Route: 042
     Dates: start: 20110707

REACTIONS (1)
  - THROMBOSIS IN DEVICE [None]
